FAERS Safety Report 10689850 (Version 4)
Quarter: 2015Q1

REPORT INFORMATION
  Report Type: Report from Study
  Country: HU (occurrence: HU)
  Receive Date: 20150105
  Receipt Date: 20150313
  Transmission Date: 20150720
  Serious: Yes (Other)
  Sender: FDA-Public Use
  Company Number: HU-JNJFOC-20141215528

PATIENT
  Age: 51 Year
  Sex: Male
  Weight: 102 kg

DRUGS (9)
  1. STELARA [Suspect]
     Active Substance: USTEKINUMAB
     Indication: PSORIASIS
     Route: 058
  2. MAGNESIUM [Concomitant]
     Active Substance: MAGNESIUM
     Route: 065
  3. MIDERIZONE [Concomitant]
     Route: 065
  4. HUMA-FOLACID [Concomitant]
     Route: 065
  5. ASPIRIN. [Concomitant]
     Active Substance: ASPIRIN
     Route: 065
  6. STELARA [Suspect]
     Active Substance: USTEKINUMAB
     Indication: PSORIASIS
     Route: 058
     Dates: start: 20140619, end: 20150105
  7. C VITAMIN [Concomitant]
     Route: 065
  8. ATORVASTATIN [Concomitant]
     Active Substance: ATORVASTATIN
     Route: 065
  9. DICLOFENAC [Concomitant]
     Active Substance: DICLOFENAC
     Route: 065

REACTIONS (8)
  - Pollakiuria [Unknown]
  - Therapeutic response decreased [Recovering/Resolving]
  - Splenomegaly [Unknown]
  - Weight increased [Recovered/Resolved]
  - Suffocation feeling [Unknown]
  - Hepatic cirrhosis [Unknown]
  - Chest pain [Recovered/Resolved]
  - Lymphadenopathy [Unknown]

NARRATIVE: CASE EVENT DATE: 20141205
